FAERS Safety Report 7415223-7 (Version None)
Quarter: 2011Q2

REPORT INFORMATION
  Report Type: 
  Country: None (occurrence: None)
  Receive Date: 20110414
  Receipt Date: 20110408
  Transmission Date: 20111010
  Serious: Yes (Death, Other)
  Sender: FDA-Public Use
  Company Number: PHEH2006US15260

PATIENT
  Sex: Female
  Weight: 66.667 kg

DRUGS (46)
  1. AREDIA [Suspect]
     Dosage: 90 MG, QMO
     Dates: start: 20011206
  2. ZOFRAN [Concomitant]
     Dosage: PRN
     Dates: start: 20010101
  3. FOSAMAX [Concomitant]
     Indication: OSTEOPOROSIS
     Dosage: UNK
     Dates: start: 20010101, end: 20010101
  4. RADIATION [Concomitant]
  5. PENICILLIN VK [Concomitant]
     Dosage: 250 MG, UNK
  6. IBUPROFEN [Concomitant]
     Dosage: 200MG 2 PER DAY
  7. AROMASIN [Concomitant]
     Dosage: UNK
     Dates: start: 20050321, end: 20050718
  8. ROMOZIN ^GLAXO WELLCOME^ [Concomitant]
     Dosage: UNK
     Dates: end: 20060328
  9. COMPAZINE [Concomitant]
     Dosage: PRN
  10. ARANESP [Concomitant]
     Indication: ANAEMIA
     Dosage: 300 MCG
  11. COMFORT GEL LIQUID [Concomitant]
  12. LOVENOX [Concomitant]
     Dosage: UNK
  13. ZOMETA [Suspect]
     Indication: METASTASES TO BONE
     Dosage: 4 MG, UNK
     Dates: start: 20020601, end: 20060301
  14. TAMOXIFEN CITRATE [Concomitant]
  15. DECADRON [Concomitant]
     Indication: RADIOTHERAPY
     Dosage: UNK
     Route: 048
     Dates: start: 20061001
  16. PHENERGAN HCL [Concomitant]
  17. LEVAQUIN [Concomitant]
     Dosage: 500 MG, UNK
  18. ALPRAZOLAM [Concomitant]
     Dosage: 0.25 MG TID AND PRN
  19. NABUMETONE [Concomitant]
     Dosage: 150 MG, UNK
  20. VITAMINS [Concomitant]
     Dosage: 1 PER DAY
  21. ARIMIDEX [Concomitant]
     Dosage: UNK
     Dates: start: 20010101, end: 20050321
  22. MORPHINE [Concomitant]
  23. ZOLADEX [Concomitant]
     Dosage: 3.6 MG MONTHLY INJECTION
     Dates: start: 20020101, end: 20040101
  24. VITAMIN B 1-6-12 [Concomitant]
     Dosage: 100 MG, BID
  25. AVASTIN [Concomitant]
     Dosage: 5 MG/KG
  26. HYDROCODONE [Concomitant]
  27. CALCIUM [Concomitant]
     Dosage: 2 PER DAY
  28. EXEMESTANE [Concomitant]
     Dosage: 25 MG, QD
     Dates: start: 20050101
  29. GEMZAR [Concomitant]
     Dosage: 800 MG/M2
  30. LIDOCAINE [Concomitant]
  31. PRILOCAINE HYDROCHLORIDE [Concomitant]
  32. ASPIRIN [Concomitant]
     Dosage: 4 PER DAY
  33. PREVACID [Concomitant]
     Dosage: 30 MG, BID
  34. LEXAPRO [Concomitant]
     Indication: DEPRESSION
     Dosage: 10 MG, QD
     Dates: start: 20071101
  35. CHEMOTHERAPEUTICS NOS [Concomitant]
     Route: 042
  36. AMBIEN [Concomitant]
     Dosage: 10 MG, UNK
  37. WARFARIN [Concomitant]
     Dosage: 2 MG, UNK
  38. PROMETHAZINE [Concomitant]
     Indication: NAUSEA
  39. GABAPENTIN [Concomitant]
     Dosage: UNK
  40. LUPRON [Concomitant]
  41. FASLODEX [Concomitant]
     Dosage: 250 MG IM MONTHLY INJECTION
     Dates: start: 20060425, end: 20060901
  42. STEROIDS NOS [Concomitant]
     Dosage: UNK
     Route: 042
     Dates: start: 20061001, end: 20061001
  43. XELODA [Concomitant]
     Dosage: 1500 MG, BID
  44. OMEPRAZOLE [Concomitant]
     Dosage: 40 MG, QD
  45. MEGESTROL ACETATE [Concomitant]
     Dosage: 40 MG, UNK
  46. CLINDAMYCIN [Concomitant]
     Dosage: 150 MG, UNK

REACTIONS (41)
  - GENERAL PHYSICAL HEALTH DETERIORATION [None]
  - DEPRESSION [None]
  - NEUTROPHIL COUNT INCREASED [None]
  - NECK PAIN [None]
  - DEATH [None]
  - BREAST CANCER METASTATIC [None]
  - MENOPAUSE [None]
  - INTESTINAL FUNCTIONAL DISORDER [None]
  - CEREBRAL CYST [None]
  - COMPRESSION FRACTURE [None]
  - OEDEMA PERIPHERAL [None]
  - BONE LESION [None]
  - BLADDER DYSFUNCTION [None]
  - THROMBOSIS [None]
  - NEOPLASM MALIGNANT [None]
  - METASTASES TO BONE [None]
  - METASTASES TO CENTRAL NERVOUS SYSTEM [None]
  - ABDOMINAL PAIN [None]
  - TOOTH DISORDER [None]
  - ANXIETY [None]
  - DECREASED INTEREST [None]
  - INTERVERTEBRAL DISC DEGENERATION [None]
  - BLOOD ALKALINE PHOSPHATASE INCREASED [None]
  - PLATELET COUNT INCREASED [None]
  - OVARIAN CYST [None]
  - OSTEONECROSIS OF JAW [None]
  - PAIN [None]
  - TOOTH FRACTURE [None]
  - CARDIAC MURMUR [None]
  - AGEUSIA [None]
  - PAIN IN EXTREMITY [None]
  - HOT FLUSH [None]
  - ANAEMIA [None]
  - OSTEOMYELITIS [None]
  - CAROTID BRUIT [None]
  - MUSCULAR WEAKNESS [None]
  - SPONDYLOLISTHESIS [None]
  - LUNG DISORDER [None]
  - NEUROPATHY PERIPHERAL [None]
  - SINUSITIS [None]
  - INTERVERTEBRAL DISC PROTRUSION [None]
